FAERS Safety Report 4373857-0 (Version None)
Quarter: 2004Q1

REPORT INFORMATION
  Report Type: 
  Country: None (occurrence: None)
  Receive Date: 20040305
  Receipt Date: 20040116
  Transmission Date: 20041129
  Serious: Yes (Other)
  Sender: FDA-Public Use
  Company Number: 2004UW00902

PATIENT
  Age: 60 Year
  Sex: Female
  Weight: 81.6475 kg

DRUGS (12)
  1. CRESTOR [Suspect]
     Indication: BLOOD CHOLESTEROL INCREASED
     Dosage: 20 MG PO
     Route: 048
  2. CRESTOR [Suspect]
     Indication: BLOOD TRIGLYCERIDES INCREASED
     Dosage: 20 MG PO
     Route: 048
  3. SYNTHROID [Concomitant]
  4. BENAZEPRIL HCL [Concomitant]
  5. ACTOS [Concomitant]
  6. NEURONTIN [Concomitant]
  7. CELEBREX [Concomitant]
  8. INSULIN [Concomitant]
  9. DIOVAN [Concomitant]
  10. ALLEGRA [Concomitant]
  11. EVISTA [Concomitant]
  12. PHENTERMINE [Concomitant]

REACTIONS (2)
  - DIZZINESS [None]
  - VISION BLURRED [None]
